FAERS Safety Report 5698368-1 (Version None)
Quarter: 2008Q2

REPORT INFORMATION
  Report Type: 
  Country: None (occurrence: None)
  Receive Date: 20080403
  Receipt Date: 20080325
  Transmission Date: 20081010
  Serious: Yes (Death, Hospitalization)
  Sender: FDA-Public Use
  Company Number: 100#08#2008-01722

PATIENT
  Age: 76 Year
  Sex: Female

DRUGS (4)
  1. OXALIPLATIN [Suspect]
     Indication: RECTAL CANCER
     Dosage: 100 MG/M2 STOPPED (ON DAY 1 FOR 2 14-DAYS-CYCLES)
  2. FOLINIC ACID (CALCIUM FOLINATE) [Suspect]
     Indication: RECTAL CANCER
     Dosage: 250 MG/M2 STOPPED (ON DAY 2 FOR 2 14-DAYS-CYCLES )
  3. FLUOROURACIL [Suspect]
     Indication: RECTAL CANCER
     Dosage: 800 MG/M2 STOPPED (ON DAY 2 FOR 2 14-DAYS-CYCLES )
  4. RALTITREXID (RALTITREXID) [Suspect]
     Indication: RECTAL CANCER
     Dosage: 2.5 MG/M2 STOPPED (ON DAY 1 FOR 2 14-DAYS-CYCLES )

REACTIONS (13)
  - ATRIAL FIBRILLATION [None]
  - BIOPSY SALIVARY GLAND ABNORMAL [None]
  - CARCINOEMBRYONIC ANTIGEN INCREASED [None]
  - GASTROINTESTINAL NEOPLASM [None]
  - GENERAL PHYSICAL HEALTH DETERIORATION [None]
  - MALIGNANT NEOPLASM PROGRESSION [None]
  - METASTASES TO LUNG [None]
  - METASTATIC NEOPLASM [None]
  - MUCOSAL INFLAMMATION [None]
  - PYREXIA [None]
  - RECTAL CANCER METASTATIC [None]
  - SALIVARY GLAND MASS [None]
  - TREATMENT NONCOMPLIANCE [None]
